FAERS Safety Report 17283030 (Version 3)
Quarter: 2020Q3

REPORT INFORMATION
  Report Type: Spontaneous
  Country: DE (occurrence: DE)
  Receive Date: 20200117
  Receipt Date: 20200924
  Transmission Date: 20201102
  Serious: Yes (Death, Life-Threatening, Hospitalization, Other)
  Sender: FDA-Public Use
  Company Number: DE-IBIGEN-2020.08119

PATIENT
  Age: 72 Year
  Sex: Female
  Weight: 85 kg

DRUGS (19)
  1. CANDESARTAN. [Concomitant]
     Active Substance: CANDESARTAN
     Dosage: 1?0?1
  2. FERRO SANOL [Concomitant]
     Active Substance: FERROUS GLYCINE SULFATE
     Dosage: 1?0?1
  3. PIPAMPERONE HYDROCHLORIDE [Concomitant]
     Active Substance: PIPAMPERONE HYDROCHLORIDE
     Dosage: 20?40?20?40 MG
  4. PIPERACILLIN AND TAZOBACTAM [Suspect]
     Active Substance: PIPERACILLIN SODIUM\TAZOBACTAM SODIUM
     Indication: URINARY TRACT INFECTION
     Dosage: 9 G/DAY
     Route: 042
     Dates: start: 20191228, end: 20200106
  5. CARMEN [Concomitant]
     Dosage: 1?0?0
  6. TAVOR [Concomitant]
     Dosage: AS REQUIRED
  7. TAVOR [Concomitant]
     Dosage: 1?0?1
  8. VALPROATE [Concomitant]
     Active Substance: VALPROIC ACID
     Dosage: 1?0?1
  9. RISPERIDON [Concomitant]
     Active Substance: RISPERIDONE
     Dosage: 2?0?1
  10. NOVALGIN [Concomitant]
     Dosage: AS REQUIRED
  11. ORFIRIL [Concomitant]
     Active Substance: VALPROATE SODIUM
     Dosage: 1?0?1
  12. CARBOPLATIN. [Concomitant]
     Active Substance: CARBOPLATIN
     Dosage: 1 {CYCLICAL}   1?0?0
  13. PANTOPRAZOL [Concomitant]
     Active Substance: PANTOPRAZOLE SODIUM
     Dosage: 1?0?0
  14. QUETIAPIN [Concomitant]
     Active Substance: QUETIAPINE
     Dosage: 1?1?0
  15. FURO [Concomitant]
     Active Substance: FUROSEMIDE
     Dosage: 1?1?0
  16. DIPIPERON TABLETS [Concomitant]
     Dosage: 20?40?20
  17. METFORMIN [Concomitant]
     Active Substance: METFORMIN HYDROCHLORIDE
     Dosage: 1?0?1
  18. AKENITON [Concomitant]
     Dosage: 1?0?0
  19. CAFFEINE/PARACETAMOL/PROPYPHENAZONE [Concomitant]
     Active Substance: ACETAMINOPHEN\CAFFEINE\PROPYPHENAZONE

REACTIONS (1)
  - Diabetes insipidus [Fatal]

NARRATIVE: CASE EVENT DATE: 20200106
